FAERS Safety Report 21475464 (Version 1)
Quarter: 2022Q4

REPORT INFORMATION
  Report Type: Report from Study
  Country: US (occurrence: US)
  Receive Date: 20221019
  Receipt Date: 20221019
  Transmission Date: 20230112
  Serious: Yes (Death, Hospitalization, Other)
  Sender: FDA-Public Use
  Company Number: US-BoehringerIngelheim-2021-BI-140794

PATIENT
  Age: 56 Year
  Sex: Female

DRUGS (9)
  1. OFEV [Suspect]
     Active Substance: NINTEDANIB
     Indication: Pulmonary arterial hypertension
     Route: 048
     Dates: start: 20190724
  2. OFEV [Suspect]
     Active Substance: NINTEDANIB
     Indication: Idiopathic pulmonary fibrosis
     Route: 048
     Dates: start: 20190806
  3. OFEV [Suspect]
     Active Substance: NINTEDANIB
     Indication: Lung disorder
  4. OFEV [Suspect]
     Active Substance: NINTEDANIB
     Indication: Hypoxia
  5. TYVASO [Concomitant]
     Active Substance: TREPROSTINIL
     Indication: Pulmonary hypertension
     Dosage: 0.6MG/ML 9 BREATHS
     Route: 055
     Dates: start: 202111
  6. TYVASO [Concomitant]
     Active Substance: TREPROSTINIL
     Indication: Hypoxia
  7. TYVASO [Concomitant]
     Active Substance: TREPROSTINIL
     Indication: Idiopathic pulmonary fibrosis
  8. TYVASO [Concomitant]
     Active Substance: TREPROSTINIL
     Indication: Lung disorder
  9. SILDENAFIL [Concomitant]
     Active Substance: SILDENAFIL
     Indication: Product used for unknown indication

REACTIONS (6)
  - Death [Fatal]
  - Oedema peripheral [Recovering/Resolving]
  - Anxiety [Unknown]
  - Nausea [Not Recovered/Not Resolved]
  - Cough [Not Recovered/Not Resolved]
  - Intentional product use issue [Unknown]

NARRATIVE: CASE EVENT DATE: 20220908
